FAERS Safety Report 8585172 (Version 3)
Quarter: 2012Q4

REPORT INFORMATION
  Report Type: Report from Study
  Country: CA (occurrence: CA)
  Receive Date: 20120530
  Receipt Date: 20121225
  Transmission Date: 20130627
  Serious: Yes (Other)
  Sender: FDA-Public Use
  Company Number: CA-JNJFOC-20120517748

PATIENT
  Age: 56 Year
  Sex: Female
  Weight: 127 kg

DRUGS (13)
  1. STELARA [Suspect]
     Indication: PSORIASIS
     Route: 058
     Dates: start: 20120515
  2. STELARA [Suspect]
     Indication: PSORIASIS
     Route: 058
     Dates: start: 20111026
  3. SYNTHROID [Concomitant]
  4. PANTOLOC [Concomitant]
  5. NAPROXEN [Concomitant]
  6. APO-HYDRO [Concomitant]
  7. XALATAN [Concomitant]
  8. CITALOPRAM [Concomitant]
  9. ATACAND [Concomitant]
  10. METHOTREXATE [Concomitant]
  11. FOLIC ACID [Concomitant]
  12. PENNSAID [Concomitant]
  13. TYLENOL [Concomitant]

REACTIONS (2)
  - Dyspnoea [Recovered/Resolved]
  - Painful respiration [Recovered/Resolved]
